FAERS Safety Report 6950149-4 (Version None)
Quarter: 2010Q3

REPORT INFORMATION
  Report Type: 
  Country: None (occurrence: None)
  Receive Date: 20100828
  Receipt Date: 20100205
  Transmission Date: 20110219
  Serious: No
  Sender: FDA-Public Use
  Company Number: US-ABBOTT-09P-163-0613144-00

PATIENT
  Sex: Female
  Weight: 54.026 kg

DRUGS (8)
  1. NIASPAN [Suspect]
     Indication: MYOCARDIAL INFARCTION
     Route: 048
     Dates: start: 20091001, end: 20091202
  2. NIASPAN [Suspect]
     Indication: BLOOD CHOLESTEROL INCREASED
     Dates: start: 20100101, end: 20100101
  3. NIASPAN [Suspect]
     Dates: start: 20100101
  4. LIPITOR [Concomitant]
     Indication: MYOCARDIAL INFARCTION
  5. LIPITOR [Concomitant]
     Indication: BLOOD CHOLESTEROL INCREASED
  6. ASPIRIN [Concomitant]
     Indication: PROPHYLAXIS
  7. IRON [Concomitant]
     Indication: MINERAL SUPPLEMENTATION
  8. COQ-10 [Concomitant]
     Indication: HYPERTENSION

REACTIONS (5)
  - DIZZINESS [None]
  - PALPITATIONS [None]
  - PRURITUS [None]
  - RASH [None]
  - RECTAL HAEMORRHAGE [None]
